FAERS Safety Report 4830502-5 (Version None)
Quarter: 2005Q4

REPORT INFORMATION
  Report Type: 
  Country: None (occurrence: None)
  Receive Date: 20051114
  Receipt Date: 20051108
  Transmission Date: 20060501
  Serious: Yes (Death)
  Sender: FDA-Public Use
  Company Number: USA-2005-0021488

PATIENT
  Age: 21 Year
  Sex: Female

DRUGS (5)
  1. OXYCONTIN [Suspect]
     Dosage: MG
  2. XANAX [Suspect]
  3. LITHIUM CARBONATE [Suspect]
  4. SARAFEM (FLUOXETINE) [Concomitant]
  5. SEROQUEL [Concomitant]

REACTIONS (2)
  - POLYSUBSTANCE ABUSE [None]
  - RESPIRATORY DEPRESSION [None]
